FAERS Safety Report 14962689 (Version 1)
Quarter: 2018Q2

REPORT INFORMATION
  Report Type: Spontaneous
  Country: US (occurrence: US)
  Receive Date: 20180601
  Receipt Date: 20180601
  Transmission Date: 20180711
  Serious: No
  Sender: FDA-Public Use
  Company Number: US-BAYER-2018-095484

PATIENT
  Sex: Male

DRUGS (2)
  1. MIRAFIBER POWDER [Suspect]
     Active Substance: METHYLCELLULOSES
     Dosage: UNK
  2. MIRALAX [Suspect]
     Active Substance: POLYETHYLENE GLYCOL 3350
     Dosage: UNK

REACTIONS (1)
  - Dysgeusia [None]
